FAERS Safety Report 15511312 (Version 1)
Quarter: 2018Q4

REPORT INFORMATION
  Report Type: Spontaneous
  Country: US (occurrence: US)
  Receive Date: 20181010
  Receipt Date: 20181010
  Transmission Date: 20190205
  Serious: No
  Sender: FDA-Public Use
  Company Number: None

PATIENT
  Age: 53 Year
  Sex: Male
  Weight: 91 kg

DRUGS (3)
  1. CARFILZOMIB [Suspect]
     Active Substance: CARFILZOMIB
  2. LENALIDOMIDE [Suspect]
     Active Substance: LENALIDOMIDE
  3. DEXAMETHASONE. [Suspect]
     Active Substance: DEXAMETHASONE

REACTIONS (10)
  - Muscle spasms [None]
  - Productive cough [None]
  - Abdominal distension [None]
  - Atelectasis [None]
  - Pleural effusion [None]
  - Orthopnoea [None]
  - Abdominal pain [None]
  - Dyspnoea [None]
  - Cough [None]
  - Peripheral swelling [None]

NARRATIVE: CASE EVENT DATE: 20180426
